FAERS Safety Report 16399041 (Version 2)
Quarter: 2019Q2

REPORT INFORMATION
  Report Type: Spontaneous
  Country: PL (occurrence: PL)
  Receive Date: 20190606
  Receipt Date: 20190611
  Transmission Date: 20190711
  Serious: Yes (Other)
  Sender: FDA-Public Use
  Company Number: PL-ASTRAZENECA-2019SE81155

PATIENT
  Sex: Female

DRUGS (1)
  1. IRESSA [Suspect]
     Active Substance: GEFITINIB
     Indication: NON-SMALL CELL LUNG CANCER
     Route: 048

REACTIONS (6)
  - Skin disorder [Recovering/Resolving]
  - Neurological symptom [Unknown]
  - Mental disorder [Unknown]
  - Paraneoplastic syndrome [Unknown]
  - Aphasia [Unknown]
  - Encephalitis [Unknown]
